FAERS Safety Report 14972609 (Version 2)
Quarter: 2018Q3

REPORT INFORMATION
  Report Type: Spontaneous
  Country: US (occurrence: US)
  Receive Date: 20180605
  Receipt Date: 20180831
  Transmission Date: 20181010
  Serious: Yes (Other)
  Sender: FDA-Public Use
  Company Number: US-PFIZER INC-2018226241

PATIENT
  Age: 86 Year
  Sex: Male
  Weight: 91 kg

DRUGS (1)
  1. ADVIL [Suspect]
     Active Substance: IBUPROFEN
     Indication: ARTHRALGIA
     Dosage: 2 LIQUIGELS, AS NEEDED
     Dates: start: 20180531

REACTIONS (7)
  - Dyspnoea [Unknown]
  - Oral discomfort [Recovering/Resolving]
  - Oral mucosal blistering [Unknown]
  - Suspected product tampering [Unknown]
  - Choking [Unknown]
  - Feeling abnormal [Unknown]
  - Tongue discomfort [Recovering/Resolving]

NARRATIVE: CASE EVENT DATE: 20180531
